FAERS Safety Report 7299228-5 (Version None)
Quarter: 2011Q1

REPORT INFORMATION
  Report Type: 
  Country: None (occurrence: None)
  Receive Date: 20110217
  Receipt Date: 20110207
  Transmission Date: 20110831
  Serious: Yes (Hospitalization)
  Sender: FDA-Public Use
  Company Number: JP-MERCK-1102USA01126

PATIENT
  Age: 76 Year
  Sex: Female

DRUGS (4)
  1. AVAPRO [Suspect]
     Route: 048
  2. NORVASC [Concomitant]
     Route: 065
  3. JANUVIA [Suspect]
     Indication: TYPE 2 DIABETES MELLITUS
     Route: 048
     Dates: start: 20100530, end: 20101201
  4. JANUVIA [Suspect]
     Route: 048
     Dates: start: 20101201

REACTIONS (1)
  - BILE DUCT STONE [None]
